FAERS Safety Report 4294939-8 (Version None)
Quarter: 2004Q1

REPORT INFORMATION
  Report Type: 
  Country: None (occurrence: None)
  Receive Date: 20040216
  Receipt Date: 20030306
  Transmission Date: 20041129
  Serious: Yes (Other)
  Sender: FDA-Public Use
  Company Number: US-GLAXOSMITHKLINE-A0399420A

PATIENT
  Age: 45 Year
  Sex: Female

DRUGS (7)
  1. LAMICTAL [Suspect]
     Dosage: 25MG UNKNOWN
     Route: 048
     Dates: start: 20030127, end: 20030130
  2. DEPAKOTE [Concomitant]
     Indication: BIPOLAR DISORDER
     Dosage: 1000MG TWICE PER DAY
     Route: 048
  3. NEURONTIN [Concomitant]
     Dosage: 1400MG PER DAY
     Route: 048
  4. AMBIEN [Concomitant]
     Dosage: 10MG AT NIGHT
     Route: 048
  5. NAPROXEN [Concomitant]
  6. ULTRAM [Concomitant]
  7. SKELAXIN [Concomitant]

REACTIONS (6)
  - DRUG HYPERSENSITIVITY [None]
  - DYSKINESIA [None]
  - DYSTONIA [None]
  - FLUID INTAKE REDUCED [None]
  - TIC [None]
  - TREMOR [None]
